FAERS Safety Report 7868652-1 (Version None)
Quarter: 2011Q4

REPORT INFORMATION
  Report Type: 
  Country: None (occurrence: None)
  Receive Date: 20111028
  Receipt Date: 20101216
  Transmission Date: 20120403
  Serious: No
  Sender: FDA-Public Use
  Company Number: US-AMGEN-USASP2010009829

PATIENT
  Age: 64 Year
  Sex: Female
  Weight: 64.853 kg

DRUGS (7)
  1. OMEGA 3                            /00931501/ [Concomitant]
     Dosage: 1000 MG, UNK
  2. FOLIC ACID [Concomitant]
     Dosage: 1 MG, UNK
  3. CEPACOL                            /00283001/ [Concomitant]
  4. MULTIVITAMIN                       /00097801/ [Concomitant]
  5. VITAMIN D [Concomitant]
  6. ENBREL [Suspect]
     Indication: PRODUCT USED FOR UNKNOWN INDICATION
     Dosage: 50 MG, QWK
  7. METHOTREXATE [Concomitant]
     Dosage: 2.5 MG, UNK

REACTIONS (1)
  - UPPER RESPIRATORY TRACT INFECTION [None]
